FAERS Safety Report 13948407 (Version 1)
Quarter: 2017Q3

REPORT INFORMATION
  Report Type: Spontaneous
  Country: US (occurrence: US)
  Receive Date: 20170908
  Receipt Date: 20170908
  Transmission Date: 20171128
  Serious: Yes (Other)
  Sender: FDA-Public Use
  Company Number: US-APOTEX-2017AP018140

PATIENT
  Age: 43 Year
  Sex: Female

DRUGS (14)
  1. VANCOMYCIN [Suspect]
     Active Substance: VANCOMYCIN
     Indication: EYE INFECTION
     Dosage: 50 MG/ML
     Route: 061
  2. NATAMYCIN [Suspect]
     Active Substance: NATAMYCIN
     Indication: EYE INFECTION
  3. FLUCONAZOLE TABLETS [Suspect]
     Active Substance: FLUCONAZOLE
     Indication: EYE INFECTION
  4. NATAMYCIN [Suspect]
     Active Substance: NATAMYCIN
     Indication: FUSARIUM INFECTION
     Dosage: 0.5 %, UNK
     Route: 061
  5. AMPHOTERICIN [Suspect]
     Active Substance: AMPHOTERICIN B
     Indication: FUSARIUM INFECTION
     Dosage: 0.5 %, UNK
     Route: 061
  6. FLUCONAZOLE TABLETS [Suspect]
     Active Substance: FLUCONAZOLE
     Indication: FUSARIUM INFECTION
     Dosage: 200 MG, QD
     Route: 065
  7. ACYCLOVIR                          /00587301/ [Suspect]
     Active Substance: ACYCLOVIR
     Indication: EYE INFECTION
     Dosage: 200 MG, FIVE TIMES A DAY
     Route: 065
  8. VORICONAZOLE. [Suspect]
     Active Substance: VORICONAZOLE
     Indication: EYE INFECTION
     Dosage: 200 MG, BID
     Route: 042
  9. VORICONAZOLE. [Suspect]
     Active Substance: VORICONAZOLE
     Dosage: 200 MG, BID
     Route: 048
  10. VORICONAZOLE. [Suspect]
     Active Substance: VORICONAZOLE
     Indication: FUSARIUM INFECTION
     Dosage: 1 %, 8 TIMES A DAY
     Route: 061
  11. AMPHOTERICIN [Suspect]
     Active Substance: AMPHOTERICIN B
     Indication: EYE INFECTION
  12. VORICONAZOLE. [Suspect]
     Active Substance: VORICONAZOLE
     Dosage: 10 MCG/0.1 ML  INTRAVITREAL
     Route: 031
  13. VORICONAZOLE. [Suspect]
     Active Substance: VORICONAZOLE
     Dosage: 0.15 ML, SINGLE
     Route: 031
  14. GATIFLOXACIN. [Suspect]
     Active Substance: GATIFLOXACIN
     Indication: EYE INFECTION
     Dosage: 0.03 %, UNK
     Route: 061

REACTIONS (1)
  - Treatment failure [Unknown]
